FAERS Safety Report 9466913 (Version 1)
Quarter: 2013Q3

REPORT INFORMATION
  Report Type: Spontaneous
  Country: US (occurrence: US)
  Receive Date: 20130820
  Receipt Date: 20130820
  Transmission Date: 20140515
  Serious: Yes (Other)
  Sender: FDA-Public Use
  Company Number: US-UCBSA-095234

PATIENT
  Age: 66 Year
  Sex: Male

DRUGS (1)
  1. VIMPAT [Suspect]
     Indication: CONVULSION
     Dosage: STRENGTH: 200MG

REACTIONS (3)
  - Encephalitis [Unknown]
  - Cerebrovascular accident [Unknown]
  - Convulsion [Unknown]
